FAERS Safety Report 8581758-7 (Version None)
Quarter: 2012Q3

REPORT INFORMATION
  Report Type: 
  Country: None (occurrence: None)
  Receive Date: 20120809
  Receipt Date: 20120731
  Transmission Date: 20120928
  Serious: Yes (Hospitalization)
  Sender: FDA-Public Use
  Company Number: CA-JNJFOC-20120800753

PATIENT
  Sex: Male
  Weight: 53 kg

DRUGS (1)
  1. REMICADE [Suspect]
     Indication: CROHN'S DISEASE
     Route: 042
     Dates: start: 20110501

REACTIONS (3)
  - ABDOMINAL PAIN UPPER [None]
  - BACK PAIN [None]
  - ROAD TRAFFIC ACCIDENT [None]
